FAERS Safety Report 16668902 (Version 1)
Quarter: 2019Q3

REPORT INFORMATION
  Report Type: Spontaneous
  Country: US (occurrence: US)
  Receive Date: 20190620
  Receipt Date: 20190620
  Transmission Date: 20191004
  Serious: No
  Sender: FDA-Public Use
  Company Number: None

PATIENT
  Age: 56 Year
  Sex: Female

DRUGS (1)
  1. H.P. ACTHAR [Suspect]
     Active Substance: CORTICOTROPIN
     Dosage: ?          OTHER FREQUENCY:UNKNOWN;?
     Route: 030
     Dates: start: 201905

REACTIONS (4)
  - Rash [None]
  - Injection site swelling [None]
  - Injection site rash [None]
  - Peripheral swelling [None]

NARRATIVE: CASE EVENT DATE: 20190618
